FAERS Safety Report 22102095 (Version 2)
Quarter: 2023Q2

REPORT INFORMATION
  Report Type: Spontaneous
  Country: US (occurrence: None)
  Receive Date: 20230316
  Receipt Date: 20230425
  Transmission Date: 20230721
  Serious: No
  Sender: FDA-Public Use
  Company Number: 2023A044339

PATIENT
  Age: 24544 Day
  Sex: Male
  Weight: 91.6 kg

DRUGS (3)
  1. BYDUREON BCISE [Suspect]
     Active Substance: EXENATIDE
     Indication: Type 2 diabetes mellitus
     Route: 058
     Dates: start: 20230207, end: 20230213
  2. BYDUREON BCISE [Suspect]
     Active Substance: EXENATIDE
     Indication: Hyperlipidaemia
     Route: 058
     Dates: start: 20230207, end: 20230213
  3. ENTRESTO [Concomitant]
     Active Substance: SACUBITRIL\VALSARTAN

REACTIONS (11)
  - Injection site pain [Recovered/Resolved]
  - Fatigue [Recovering/Resolving]
  - Asthenia [Recovering/Resolving]
  - Feeling cold [Recovering/Resolving]
  - Gastrointestinal motility disorder [Not Recovered/Not Resolved]
  - Body temperature fluctuation [Recovering/Resolving]
  - Localised infection [Recovering/Resolving]
  - Nasopharyngitis [Recovering/Resolving]
  - Fatigue [Recovering/Resolving]
  - Therapy cessation [Recovering/Resolving]
  - Off label use [Recovering/Resolving]

NARRATIVE: CASE EVENT DATE: 20230208
